FAERS Safety Report 8474861-3 (Version None)
Quarter: 2012Q2

REPORT INFORMATION
  Report Type: 
  Country: None (occurrence: None)
  Receive Date: 20120628
  Receipt Date: 20120621
  Transmission Date: 20120825
  Serious: Yes (Other)
  Sender: FDA-Public Use
  Company Number: US-PFIZER INC-2012150734

PATIENT
  Sex: Female

DRUGS (3)
  1. ARTHROTEC [Concomitant]
     Dosage: UNK
  2. ACCURETIC [Concomitant]
     Dosage: UNK
  3. NEURONTIN [Suspect]
     Dosage: UNK

REACTIONS (2)
  - CEREBROVASCULAR ACCIDENT [None]
  - BACK DISORDER [None]
